FAERS Safety Report 8829264 (Version 1)
Quarter: 2012Q4

REPORT INFORMATION
  Report Type: Spontaneous
  Country: SG (occurrence: None)
  Receive Date: 20121004
  Receipt Date: 20121004
  Transmission Date: 20130627
  Serious: Yes (Other)
  Sender: FDA-Public Use
  Company Number: IMP_06005_2012

PATIENT
  Age: 20 Year
  Sex: Male

DRUGS (4)
  1. CABERGOLINE [Suspect]
     Indication: PROLACTIN-PRODUCING PITUITARY TUMOUR
  2. CABERGOLINE [Suspect]
     Indication: BLOOD PROLACTIN INCREASED
  3. CABERGOLINE [Suspect]
     Indication: PROLACTIN-PRODUCING PITUITARY TUMOUR
  4. CABERGOLINE [Suspect]
     Indication: BLOOD PROLACTIN INCREASED

REACTIONS (1)
  - Pituitary haemorrhage [None]
